FAERS Safety Report 11867973 (Version 1)
Quarter: 2015Q4

REPORT INFORMATION
  Report Type: Spontaneous
  Country: DE (occurrence: DE)
  Receive Date: 20151224
  Receipt Date: 20151224
  Transmission Date: 20160305
  Serious: Yes (Congenital Anomaly, Other)
  Sender: FDA-Public Use
  Company Number: DE-ASTRAZENECA-2015SF28468

PATIENT
  Sex: Female
  Weight: 3.2 kg

DRUGS (6)
  1. VENLAFAXINE [Suspect]
     Active Substance: VENLAFAXINE HYDROCHLORIDE
     Indication: DEPRESSION
     Route: 064
     Dates: start: 20141021, end: 20150701
  2. FOLIC ACID. [Concomitant]
     Active Substance: FOLIC ACID
     Indication: VITAMIN SUPPLEMENTATION
     Route: 064
  3. AMITRIPTYLINE [Concomitant]
     Active Substance: AMITRIPTYLINE
     Indication: DEPRESSION
     Route: 064
  4. SEROQUEL XR [Suspect]
     Active Substance: QUETIAPINE FUMARATE
     Indication: DEPRESSION
     Route: 064
     Dates: start: 20141021, end: 20150701
  5. URSODEOXYCHOLIC ACID [Concomitant]
     Active Substance: URSODIOL
     Indication: CHOLESTASIS OF PREGNANCY
     Route: 064
     Dates: start: 20150621, end: 20150701
  6. SEROQUEL XR [Suspect]
     Active Substance: QUETIAPINE FUMARATE
     Indication: PSYCHOTIC DISORDER
     Route: 064
     Dates: start: 20141021, end: 20150701

REACTIONS (7)
  - Syndactyly [Not Recovered/Not Resolved]
  - Seizure [Recovered/Resolved]
  - Agitation neonatal [Recovered/Resolved]
  - Temperature regulation disorder [Recovered/Resolved]
  - Feeding disorder of infancy or early childhood [Recovered/Resolved]
  - Atrial septal defect [Unknown]
  - Hypotonia neonatal [Recovered/Resolved]

NARRATIVE: CASE EVENT DATE: 20150701
